FAERS Safety Report 13391264 (Version 6)
Quarter: 2018Q2

REPORT INFORMATION
  Report Type: Report from Study
  Country: DE (occurrence: DE)
  Receive Date: 20170331
  Receipt Date: 20180605
  Transmission Date: 20180711
  Serious: Yes (Other)
  Sender: FDA-Public Use
  Company Number: DE-INCYTE CORPORATION-2015IN006060

PATIENT

DRUGS (2)
  1. JAKAVI [Suspect]
     Active Substance: RUXOLITINIB
     Indication: MYELOFIBROSIS
     Dosage: 40 MG, QD
     Route: 048
     Dates: start: 20140415, end: 20161020
  2. JAKAVI [Suspect]
     Active Substance: RUXOLITINIB
     Dosage: 20 MG, QD
     Route: 048
     Dates: start: 20161021

REACTIONS (18)
  - Acanthosis [Unknown]
  - Bowen^s disease [Recovered/Resolved]
  - Second primary malignancy [Recovered/Resolved]
  - Sebaceous hyperplasia [Unknown]
  - Second primary malignancy [Recovered/Resolved]
  - Second primary malignancy [Recovered/Resolved]
  - Basal cell carcinoma [Recovered/Resolved]
  - Pneumonia [Recovered/Resolved]
  - Second primary malignancy [Recovered/Resolved]
  - Second primary malignancy [Recovered/Resolved]
  - Basal cell carcinoma [Recovered/Resolved]
  - Epistaxis [Recovered/Resolved]
  - Actinic elastosis [Unknown]
  - Basal cell carcinoma [Recovered/Resolved]
  - Dermatitis [Unknown]
  - Basal cell carcinoma [Recovered/Resolved]
  - Bowen^s disease [Recovered/Resolved]
  - Second primary malignancy [Recovered/Resolved]

NARRATIVE: CASE EVENT DATE: 20150807
